FAERS Safety Report 23844360 (Version 3)
Quarter: 2024Q2

REPORT INFORMATION
  Report Type: Report from Study
  Country: CA (occurrence: CA)
  Receive Date: 20240510
  Receipt Date: 20240614
  Transmission Date: 20240716
  Serious: Yes (Other)
  Sender: FDA-Public Use
  Company Number: CA-BIOVITRUM-2024-CA-002004

PATIENT

DRUGS (2)
  1. PEGCETACOPLAN [Suspect]
     Active Substance: PEGCETACOPLAN
     Indication: Paroxysmal nocturnal haemoglobinuria
     Dosage: 1 VIAL TWICE WEEKLY ON DAYS 1 AND 4
     Route: 058
     Dates: start: 20240129
  2. SOLIRIS [Concomitant]
     Active Substance: ECULIZUMAB
     Indication: Product used for unknown indication

REACTIONS (11)
  - Flank pain [Not Recovered/Not Resolved]
  - Immunosuppression [Unknown]
  - Infusion site discolouration [Not Recovered/Not Resolved]
  - Infusion site swelling [Not Recovered/Not Resolved]
  - Infusion site pain [Recovered/Resolved]
  - Musculoskeletal chest pain [Recovered/Resolved]
  - Fatigue [Unknown]
  - Infusion site erythema [Unknown]
  - Sinusitis [Unknown]
  - Pharyngitis [Unknown]
  - Needle issue [Unknown]

NARRATIVE: CASE EVENT DATE: 20240131
